FAERS Safety Report 20995597 (Version 1)
Quarter: 2022Q2

REPORT INFORMATION
  Report Type: Spontaneous
  Country: CA (occurrence: CA)
  Receive Date: 20220623
  Receipt Date: 20220623
  Transmission Date: 20220721
  Serious: Yes (Other)
  Sender: FDA-Public Use
  Company Number: CA-JNJFOC-20220642060

PATIENT
  Age: 29 Year
  Sex: Male
  Weight: 71 kg

DRUGS (1)
  1. REMICADE [Suspect]
     Active Substance: INFLIXIMAB
     Indication: Colitis ulcerative
     Route: 041

REACTIONS (3)
  - Chills [Recovered/Resolved]
  - Rash [Recovered/Resolved]
  - Off label use [Recovered/Resolved]
